FAERS Safety Report 14179599 (Version 3)
Quarter: 2017Q4

REPORT INFORMATION
  Report Type: Spontaneous
  Country: CA (occurrence: CA)
  Receive Date: 20171110
  Receipt Date: 20171201
  Transmission Date: 20180321
  Serious: Yes (Other)
  Sender: FDA-Public Use
  Company Number: CA-HIKMA PHARMACEUTICALS CO. LTD-2017CA015410

PATIENT

DRUGS (5)
  1. INFLECTRA [Suspect]
     Active Substance: INFLIXIMAB-DYYB
     Indication: COLITIS ULCERATIVE
     Dosage: 600 MG, CYCLIC(EVERY 2, 6 WEEKS THEN EVERY 8 WEEKS
     Route: 042
     Dates: start: 20171022
  2. INFLECTRA [Suspect]
     Active Substance: INFLIXIMAB-DYYB
     Dosage: 600 MG, EVERY 1 AND 4 WEEKS, THEN 300 MG EVERY 8 WEEKS
     Route: 042
     Dates: start: 20171022
  3. SOLU-MEDROL [Concomitant]
     Active Substance: METHYLPREDNISOLONE SODIUM SUCCINATE
     Dosage: UNK
     Dates: start: 201710
  4. METHOTREXATE. [Concomitant]
     Active Substance: METHOTREXATE
     Dosage: UNK
     Dates: start: 201710
  5. PREDNISONE. [Concomitant]
     Active Substance: PREDNISONE
     Dosage: UNK
     Dates: start: 201710

REACTIONS (5)
  - Vein rupture [Unknown]
  - Drug effect incomplete [Unknown]
  - Vein rupture [Unknown]
  - Heart rate irregular [Unknown]
  - Abdominal distension [Unknown]

NARRATIVE: CASE EVENT DATE: 20171031
